FAERS Safety Report 22710284 (Version 11)
Quarter: 2024Q2

REPORT INFORMATION
  Report Type: Report from Study
  Country: PT (occurrence: PT)
  Receive Date: 20230717
  Receipt Date: 20240413
  Transmission Date: 20240715
  Serious: Yes (Death, Other)
  Sender: FDA-Public Use
  Company Number: PT-ABBVIE-4759988

PATIENT
  Age: 81 Year
  Sex: Male

DRUGS (15)
  1. CARBIDOPA\LEVODOPA [Suspect]
     Active Substance: CARBIDOPA\LEVODOPA
     Indication: Parkinson^s disease
     Dosage: 20 MG + 5 MG (VIA PEG)
     Route: 050
     Dates: start: 20230506, end: 20230519
  2. CARBIDOPA\LEVODOPA [Suspect]
     Active Substance: CARBIDOPA\LEVODOPA
     Dosage: 20 MG + 5 MG (VIA PEG), 20CC;MAINT:9CC/H;EXTRA:5.5CC
     Route: 050
     Dates: start: 20230530, end: 20230610
  3. CARBIDOPA\LEVODOPA [Suspect]
     Active Substance: CARBIDOPA\LEVODOPA
     Dosage: 20 MG + 5 MG, MORN:17CC, MAINT:9CC/H, EXTRA:3CC
     Route: 050
     Dates: start: 20230328, end: 20230505
  4. CARBIDOPA\LEVODOPA [Suspect]
     Active Substance: CARBIDOPA\LEVODOPA
     Dosage: 20 MG + 5 MG (VIA PEG), MORN:18CC, MAINT:9CC/H, EXTRA:3CC
     Route: 050
     Dates: start: 20230505, end: 20230506
  5. CARBIDOPA\LEVODOPA [Suspect]
     Active Substance: CARBIDOPA\LEVODOPA
     Dosage: 20 MG + 5 MG, MORN:9CC, MAINT:6.5CC/H, EXTRA:3CC?LAST ADMIN DATE: 2023
     Route: 050
     Dates: start: 20230208
  6. CARBIDOPA\LEVODOPA [Suspect]
     Active Substance: CARBIDOPA\LEVODOPA
     Dosage: 20 MG + 5 MG (VIA PEG), 20CC;MAINT:9CC/H;EXTRA:4.5CC
     Route: 050
     Dates: start: 20230519, end: 20230530
  7. CARBIDOPA\LEVODOPA [Suspect]
     Active Substance: CARBIDOPA\LEVODOPA
     Dosage: 20 MG + 5 MG (VIA PEG)?20CC;MAINT:12CC/H;EXTRA:6.5CC DRUG END DATE 29 AUG 2023
     Route: 050
     Dates: start: 20230810
  8. CARBIDOPA\LEVODOPA [Suspect]
     Active Substance: CARBIDOPA\LEVODOPA
     Dosage: 20 MG + 5 MG (VIA PEG)
     Route: 050
     Dates: start: 20230610, end: 20230810
  9. MIDODRINE [Concomitant]
     Active Substance: MIDODRINE
     Indication: Product used for unknown indication
     Dosage: 4 TABLET?FORM STRENGTH: 2.5 MG?FREQUENCY TEXT: 2 IN FASTING AND 2 AT LUNCH?START DATE TEXT: BEFOR...
     Route: 048
  10. QUETIAPINE [Concomitant]
     Active Substance: QUETIAPINE
     Indication: Product used for unknown indication
     Dosage: 2 TABLET?FORM STRENGTH: 25 MILLIGRAM?FREQUENCY TEXT: 1 TABLET AT LUNCH PLUS 1 TABLET AT DINNER?ST...
     Route: 048
  11. CALCIFEDIOL [Concomitant]
     Active Substance: CALCIFEDIOL
     Indication: Product used for unknown indication
     Dosage: FORM STRENGTH: 0.266 MILLIGRAM?START DATE TEXT: BEFORE DUODOPA
     Route: 048
  12. MEMANTINE [Concomitant]
     Active Substance: MEMANTINE
     Indication: Product used for unknown indication
     Dosage: 1 TABLET?FORM STRENGTH: 20 MILLIGRAM?FREQUENCY TEXT: AT BREAKFAST?START DATE TEXT: BEFORE DUODOPA
     Route: 048
  13. SINEMET CR [Concomitant]
     Active Substance: CARBIDOPA\LEVODOPA
     Indication: Product used for unknown indication
     Dosage: 200 MG AND 50 MG?FREQUENCY TEXT: AT NIGHT?START DATE TEXT: BEFORE DUODOPA
     Route: 048
  14. VORTIOXETINE HYDROBROMIDE [Concomitant]
     Active Substance: VORTIOXETINE HYDROBROMIDE
     Indication: Product used for unknown indication
     Dosage: 1 TABLET?FORM STRENGTH: 10 MILLIGRAM?FREQUENCY TEXT: AT BREAKFAST?START DATE TEXT: BEFORE DUODOPA
     Route: 048
  15. OPICAPONE [Suspect]
     Active Substance: OPICAPONE
     Indication: Product used for unknown indication
     Route: 065
     Dates: start: 20230619

REACTIONS (26)
  - Cardiac arrest [Fatal]
  - Gait disturbance [Not Recovered/Not Resolved]
  - On and off phenomenon [Not Recovered/Not Resolved]
  - Off label use [Not Recovered/Not Resolved]
  - Device dislocation [Recovered/Resolved]
  - Device dislocation [Unknown]
  - Blepharospasm [Not Recovered/Not Resolved]
  - Somnolence [Not Recovered/Not Resolved]
  - Musculoskeletal stiffness [Not Recovered/Not Resolved]
  - Bradykinesia [Not Recovered/Not Resolved]
  - Buttock injury [Recovered/Resolved]
  - Skeletal injury [Recovered/Resolved]
  - Urinary tract infection [Recovered/Resolved]
  - Urine output decreased [Recovered/Resolved]
  - Therapeutic product effect incomplete [Recovered/Resolved]
  - Aggression [Recovered/Resolved]
  - Fungal infection [Recovered/Resolved]
  - Impulsive behaviour [Recovered/Resolved]
  - Delusion [Recovered/Resolved]
  - Dehydration [Recovered/Resolved]
  - Erythema [Recovered/Resolved]
  - Pneumonia klebsiella [Recovered/Resolved]
  - Wheezing [Not Recovered/Not Resolved]
  - Infection [Not Recovered/Not Resolved]
  - Productive cough [Not Recovered/Not Resolved]
  - Aspiration [Not Recovered/Not Resolved]

NARRATIVE: CASE EVENT DATE: 20230501
